FAERS Safety Report 16093546 (Version 1)
Quarter: 2019Q1

REPORT INFORMATION
  Report Type: Spontaneous
  Country: US (occurrence: US)
  Receive Date: 20190215
  Receipt Date: 20190215
  Transmission Date: 20190418
  Serious: Yes (Life-Threatening, Hospitalization)
  Sender: FDA-Public Use
  Company Number: None

PATIENT
  Sex: Male
  Weight: 102.06 kg

DRUGS (8)
  1. LOSARTAN POTASSIUM. [Concomitant]
     Active Substance: LOSARTAN POTASSIUM
  2. CLONIDINE. [Concomitant]
     Active Substance: CLONIDINE
  3. STIVARGA [Suspect]
     Active Substance: REGORAFENIB
     Indication: METASTASES TO LIVER
     Dosage: ?          QUANTITY:28 DF DOSAGE FORM;OTHER FREQUENCY:IN THE MORNING;?
     Route: 048
     Dates: start: 20190123, end: 20190123
  4. TAMSULOSIN [Concomitant]
     Active Substance: TAMSULOSIN
  5. PROCHLORPER [Concomitant]
  6. STIVARGA [Suspect]
     Active Substance: REGORAFENIB
     Indication: COLON CANCER
     Dosage: ?          QUANTITY:28 DF DOSAGE FORM;OTHER FREQUENCY:IN THE MORNING;?
     Route: 048
     Dates: start: 20190123, end: 20190123
  7. ELIQUIS [Concomitant]
     Active Substance: APIXABAN
  8. ONDANSETRON [Concomitant]
     Active Substance: ONDANSETRON

REACTIONS (1)
  - Blood pressure increased [None]
